FAERS Safety Report 6219868-1 (Version None)
Quarter: 2009Q2

REPORT INFORMATION
  Report Type: 
  Country: None (occurrence: None)
  Receive Date: 20090609
  Receipt Date: 20090501
  Transmission Date: 20091009
  Serious: No
  Sender: FDA-Public Use
  Company Number: US-BAYER-200920344NA

PATIENT
  Age: 19 Year
  Sex: Female
  Weight: 68 kg

DRUGS (1)
  1. MAGNEVIST SINGLE USE, 15ML PRE-FILLED SSYRINGE [Suspect]
     Indication: NUCLEAR MAGNETIC RESONANCE IMAGING BRAIN
     Dosage: AS USED: 15 ML  UNIT DOSE: 15 ML
     Route: 042
     Dates: start: 20090430, end: 20090430

REACTIONS (3)
  - NASAL CONGESTION [None]
  - NAUSEA [None]
  - VOMITING [None]
